FAERS Safety Report 8538201-3 (Version None)
Quarter: 2012Q3

REPORT INFORMATION
  Report Type: 
  Country: None (occurrence: None)
  Receive Date: 20120726
  Receipt Date: 20120720
  Transmission Date: 20120928
  Serious: No
  Sender: FDA-Public Use
  Company Number: US-009507513-2012SP027543

PATIENT

DRUGS (5)
  1. NASONEX [Suspect]
     Indication: HYPERSENSITIVITY
     Dosage: 2 SPRAYS DAILY IN EACH NOSTRIL
     Route: 045
     Dates: start: 20100101
  2. ZANTAC [Concomitant]
  3. PROVENTIL [Concomitant]
  4. LOVASTATIN [Concomitant]
  5. OMEGA-3 MARINE TRIGLYCERIDES [Concomitant]

REACTIONS (2)
  - DRUG DEPENDENCE [None]
  - RHINORRHOEA [None]
